FAERS Safety Report 9152727 (Version 1)
Quarter: 2013Q1

REPORT INFORMATION
  Report Type: Spontaneous
  Country: US (occurrence: US)
  Receive Date: 20130308
  Receipt Date: 20130308
  Transmission Date: 20140127
  Serious: No
  Sender: FDA-Public Use
  Company Number: US-009507513-1303USA003969

PATIENT
  Sex: Female

DRUGS (1)
  1. AFRIN SPRAY [Suspect]
     Indication: PRODUCT USED FOR UNKNOWN INDICATION
     Dosage: UNK
     Route: 045
     Dates: start: 2013

REACTIONS (3)
  - Nasal discomfort [Unknown]
  - Rhinorrhoea [Unknown]
  - Incorrect drug administration duration [Unknown]
